FAERS Safety Report 16793919 (Version 2)
Quarter: 2019Q4

REPORT INFORMATION
  Report Type: Report from Study
  Country: US (occurrence: US)
  Receive Date: 20190911
  Receipt Date: 20191111
  Transmission Date: 20200122
  Serious: Yes (Death, Other)
  Sender: FDA-Public Use
  Company Number: US-GILEAD-2019-0427699

PATIENT
  Age: 15 Year
  Sex: Male
  Weight: 108 kg

DRUGS (16)
  1. CENTRUM JR [MINERALS NOS;VITAMINS NOS] [Concomitant]
  2. WARFARIN [Concomitant]
     Active Substance: WARFARIN
  3. COUMADIN [Concomitant]
     Active Substance: WARFARIN SODIUM
  4. BUDESONIDE. [Concomitant]
     Active Substance: BUDESONIDE
  5. CALCIUM + VITAMIN D [CALCIUM;COLECALCIFEROL] [Concomitant]
  6. ALDACTONE [Concomitant]
     Active Substance: SPIRONOLACTONE
  7. ADCIRCA [Concomitant]
     Active Substance: TADALAFIL
  8. BUMETANIDE. [Concomitant]
     Active Substance: BUMETANIDE
  9. PRILOSEC [Concomitant]
     Active Substance: OMEPRAZOLE MAGNESIUM
  10. ZYRTEC [Concomitant]
     Active Substance: CETIRIZINE HYDROCHLORIDE
  11. SINGULAIR [Concomitant]
     Active Substance: MONTELUKAST SODIUM
  12. AMBRISENTAN [Suspect]
     Active Substance: AMBRISENTAN
     Indication: CARDIAC FAILURE CONGESTIVE
     Dosage: 5 MG, QD
     Route: 065
     Dates: start: 20180501
  13. OXYGEN. [Concomitant]
     Active Substance: OXYGEN
  14. FLOVENT HFA [Concomitant]
     Active Substance: FLUTICASONE PROPIONATE
  15. LEVALBUTEROL [LEVOSALBUTAMOL HYDROCHLORIDE] [Concomitant]
     Active Substance: LEVALBUTEROL HYDROCHLORIDE
  16. ORAZINC [Concomitant]

REACTIONS (2)
  - Off label use [Recovered/Resolved]
  - Death [Fatal]

NARRATIVE: CASE EVENT DATE: 20190501
